FAERS Safety Report 19441362 (Version 1)
Quarter: 2021Q2

REPORT INFORMATION
  Report Type: Spontaneous
  Country: JP (occurrence: JP)
  Receive Date: 20210617
  Receipt Date: 20210617
  Transmission Date: 20210717
  Serious: Yes (Disabling)
  Sender: FDA-Public Use
  Company Number: None

PATIENT
  Age: 33 Year
  Sex: Female

DRUGS (1)
  1. CRAVIT (LEVOFLOXACIN) TABLET [Suspect]
     Active Substance: LEVOFLOXACIN
     Indication: CYSTITIS
     Dosage: ?          QUANTITY:1 TABLET(S);?
     Route: 048
     Dates: start: 20210518, end: 20210521

REACTIONS (9)
  - Dizziness [None]
  - Burning sensation [None]
  - Dyspepsia [None]
  - Hypoaesthesia [None]
  - Muscle spasms [None]
  - Muscle atrophy [None]
  - Nausea [None]
  - Diarrhoea [None]
  - Tendon pain [None]

NARRATIVE: CASE EVENT DATE: 20210520
